FAERS Safety Report 18529657 (Version 1)
Quarter: 2020Q4

REPORT INFORMATION
  Report Type: Spontaneous
  Country: US (occurrence: US)
  Receive Date: 20201120
  Receipt Date: 20201120
  Transmission Date: 20210114
  Serious: No
  Sender: FDA-Public Use
  Company Number: US-NOVOPROD-727265

PATIENT
  Age: 25 Year
  Sex: Male

DRUGS (3)
  1. NOVOLOG [Suspect]
     Active Substance: INSULIN ASPART
     Indication: TYPE 1 DIABETES MELLITUS
     Dosage: RANGE 50-100
     Route: 058
     Dates: start: 2006
  2. NOVOLOG [Suspect]
     Active Substance: INSULIN ASPART
     Dosage: DOSE INCREASED
     Route: 058
  3. NOVOLOG [Suspect]
     Active Substance: INSULIN ASPART
     Dosage: UNK
     Route: 058

REACTIONS (8)
  - Anxiety [Not Recovered/Not Resolved]
  - Nausea [Unknown]
  - Drug ineffective [Unknown]
  - Blood glucose increased [Not Recovered/Not Resolved]
  - Feeling abnormal [Not Recovered/Not Resolved]
  - Product quality issue [Unknown]
  - Weight decreased [Unknown]
  - Therapeutic product effect delayed [Unknown]

NARRATIVE: CASE EVENT DATE: 2020
